FAERS Safety Report 6395633-X (Version None)
Quarter: 2009Q4

REPORT INFORMATION
  Report Type: 
  Country: None (occurrence: None)
  Receive Date: 20091006
  Receipt Date: 20090925
  Transmission Date: 20100525
  Serious: Yes (Death)
  Sender: FDA-Public Use
  Company Number: 2009AL006247

PATIENT
  Age: 32 Year
  Sex: Male

DRUGS (2)
  1. OXYCODONE HCL [Suspect]
     Indication: PAIN
  2. NARCOTIC PAIN RELIEVERS [Concomitant]

REACTIONS (2)
  - DRUG INTERACTION [None]
  - OVERDOSE [None]
